FAERS Safety Report 16761861 (Version 4)
Quarter: 2021Q2

REPORT INFORMATION
  Report Type: Spontaneous
  Country: US (occurrence: US)
  Receive Date: 20190830
  Receipt Date: 20210518
  Transmission Date: 20210716
  Serious: Yes (Other)
  Sender: FDA-Public Use
  Company Number: US-GILEAD-2019-0425672

PATIENT
  Age: 56 Year
  Sex: Male
  Weight: 82.54 kg

DRUGS (48)
  1. ATRIPLA [Suspect]
     Active Substance: EFAVIRENZ\EMTRICITABINE\TENOFOVIR DISOPROXIL FUMARATE
     Indication: HIV INFECTION
     Dosage: UNK
     Route: 048
     Dates: start: 200909, end: 201410
  2. TIVICAY [Concomitant]
     Active Substance: DOLUTEGRAVIR SODIUM
  3. NIFEDICAL XL [Concomitant]
     Active Substance: NIFEDIPINE
  4. SUCRALFATE. [Concomitant]
     Active Substance: SUCRALFATE
  5. EXFORGE [Concomitant]
     Active Substance: AMLODIPINE BESYLATE\VALSARTAN
  6. LAMIVUDINE. [Concomitant]
     Active Substance: LAMIVUDINE
  7. DIOVAN HCT [Concomitant]
     Active Substance: HYDROCHLOROTHIAZIDE\VALSARTAN
  8. VOLTAREN [DICLOFENAC] [Concomitant]
     Active Substance: DICLOFENAC SODIUM
  9. ZOCOR [Concomitant]
     Active Substance: SIMVASTATIN
  10. DIOVAN [Concomitant]
     Active Substance: VALSARTAN
  11. DOLUTEGRAVIR [Concomitant]
     Active Substance: DOLUTEGRAVIR
  12. TEGRETOL [Concomitant]
     Active Substance: CARBAMAZEPINE
  13. LOFIBRA [FENOFIBRATE] [Concomitant]
  14. DILAUDID [Concomitant]
     Active Substance: HYDROMORPHONE HYDROCHLORIDE
  15. LISINOPRIL. [Concomitant]
     Active Substance: LISINOPRIL
  16. ZIAC [Concomitant]
     Active Substance: BISOPROLOL FUMARATE\HYDROCHLOROTHIAZIDE
  17. MARIJUANA [Concomitant]
     Active Substance: CANNABIS SATIVA SUBSP. INDICA TOP
  18. COREG [Concomitant]
     Active Substance: CARVEDILOL
  19. CATAPRES?TTS [Concomitant]
     Active Substance: CLONIDINE
  20. ROSUVASTATIN. [Concomitant]
     Active Substance: ROSUVASTATIN
  21. MITIGARE [Concomitant]
     Active Substance: COLCHICINE
  22. BISACODYL EG [Concomitant]
  23. ZIAGEN [Concomitant]
     Active Substance: ABACAVIR SULFATE
  24. HYDROCHLOROTHIAZIDE. [Concomitant]
     Active Substance: HYDROCHLOROTHIAZIDE
  25. CLONIDINE. [Concomitant]
     Active Substance: CLONIDINE
  26. CARVEDILOL. [Concomitant]
     Active Substance: CARVEDILOL
  27. TRIUMEQ [Concomitant]
     Active Substance: ABACAVIR SULFATE\DOLUTEGRAVIR SODIUM\LAMIVUDINE
  28. PROCARDIA [Concomitant]
     Active Substance: NIFEDIPINE
  29. ZYLOPRIM [Concomitant]
     Active Substance: ALLOPURINOL
  30. CRESTOR [Concomitant]
     Active Substance: ROSUVASTATIN CALCIUM
  31. MARINOL [ALLOPURINOL] [Concomitant]
     Active Substance: ALLOPURINOL
  32. VALSARTAN + HCTZ [Concomitant]
     Active Substance: HYDROCHLOROTHIAZIDE\VALSARTAN
  33. NIFEDIPINE. [Concomitant]
     Active Substance: NIFEDIPINE
  34. VIREAD [Suspect]
     Active Substance: TENOFOVIR DISOPROXIL FUMARATE
     Indication: HIV INFECTION
     Dosage: UNK
     Route: 065
     Dates: start: 200604, end: 200909
  35. EPIVIR [Concomitant]
     Active Substance: LAMIVUDINE
  36. FLONASE [Concomitant]
     Active Substance: FLUTICASONE PROPIONATE
  37. LIDODERM [Concomitant]
     Active Substance: LIDOCAINE
  38. MUCINEX [Concomitant]
     Active Substance: GUAIFENESIN
  39. RETROVIR [Concomitant]
     Active Substance: ZIDOVUDINE
  40. ZANTAC [Concomitant]
     Active Substance: RANITIDINE HYDROCHLORIDE
  41. PEG 3350 [Concomitant]
     Active Substance: POLYETHYLENE GLYCOL 3350
  42. METRONIDAZOLE. [Concomitant]
     Active Substance: METRONIDAZOLE
  43. PREDNISONE. [Concomitant]
     Active Substance: PREDNISONE
  44. COMBIVIR [Concomitant]
     Active Substance: LAMIVUDINE\ZIDOVUDINE
  45. VIRAMUNE [Concomitant]
     Active Substance: NEVIRAPINE
  46. DRISDOL [Concomitant]
     Active Substance: ERGOCALCIFEROL
  47. LOVAZA [Concomitant]
     Active Substance: OMEGA-3-ACID ETHYL ESTERS
  48. ABACAVIR. [Concomitant]
     Active Substance: ABACAVIR

REACTIONS (7)
  - Anhedonia [Not Recovered/Not Resolved]
  - Chronic kidney disease [Not Recovered/Not Resolved]
  - Multiple injuries [Unknown]
  - Pain [Not Recovered/Not Resolved]
  - Economic problem [Not Recovered/Not Resolved]
  - Anxiety [Not Recovered/Not Resolved]
  - Emotional distress [Not Recovered/Not Resolved]

NARRATIVE: CASE EVENT DATE: 20140718
